FAERS Safety Report 6203559-7 (Version None)
Quarter: 2009Q2

REPORT INFORMATION
  Report Type: 
  Country: None (occurrence: None)
  Receive Date: 20090522
  Receipt Date: 20090522
  Transmission Date: 20091009
  Serious: Yes (Disabling)
  Sender: FDA-Public Use
  Company Number: None

PATIENT
  Age: 70 Year
  Sex: Female
  Weight: 86.1834 kg

DRUGS (1)
  1. TOPIRAMATE [Suspect]
     Indication: ESSENTIAL TREMOR
     Dosage: 25 MG Q DAY X1 WEEK PO
     Route: 048
     Dates: start: 20090411, end: 20090419

REACTIONS (4)
  - EYE PAIN [None]
  - HEADACHE [None]
  - INTRAOCULAR PRESSURE INCREASED [None]
  - VISUAL ACUITY REDUCED [None]
